FAERS Safety Report 8014784-7 (Version None)
Quarter: 2011Q4

REPORT INFORMATION
  Report Type: 
  Country: None (occurrence: None)
  Receive Date: 20111229
  Receipt Date: 20111223
  Transmission Date: 20120403
  Serious: Yes (Hospitalization, Disabling, Other)
  Sender: FDA-Public Use
  Company Number: US-PFIZER INC-2011312800

PATIENT
  Sex: Female
  Weight: 77.09 kg

DRUGS (4)
  1. CELEBREX [Suspect]
     Indication: ARTHRALGIA
     Dosage: UNK
     Route: 048
  2. MORPHINE [Concomitant]
     Indication: BACK PAIN
     Dosage: 100 MG, 3X/DAY
  3. LISINOPRIL [Concomitant]
     Indication: HYPERTENSION
     Dosage: 2.5 MG, DAILY
  4. VITAMIN TAB [Concomitant]
     Dosage: UNK

REACTIONS (9)
  - CARDIAC DISORDER [None]
  - WALKING DISABILITY [None]
  - CEREBROVASCULAR ACCIDENT [None]
  - NERVOUS SYSTEM DISORDER [None]
  - MYOCARDIAL INFARCTION [None]
  - BLOOD SODIUM DECREASED [None]
  - GASTRIC DISORDER [None]
  - CARDIAC FAILURE CONGESTIVE [None]
  - COMA [None]
